FAERS Safety Report 23547782 (Version 1)
Quarter: 2024Q1

REPORT INFORMATION
  Report Type: Spontaneous
  Country: FR (occurrence: FR)
  Receive Date: 20240221
  Receipt Date: 20240221
  Transmission Date: 20240410
  Serious: Yes (Hospitalization)
  Sender: FDA-Public Use
  Company Number: None

PATIENT
  Age: 27 Year
  Sex: Female
  Weight: 69 kg

DRUGS (6)
  1. PAROEX [Suspect]
     Active Substance: CHLORHEXIDINE GLUCONATE
     Indication: Infection prophylaxis
     Route: 002
     Dates: start: 20240117, end: 20240121
  2. KETOPROFEN [Suspect]
     Active Substance: KETOPROFEN
     Indication: Pain prophylaxis
     Route: 048
     Dates: start: 20240117, end: 20240121
  3. DAFALGAN [Concomitant]
     Active Substance: ACETAMINOPHEN
  4. AUGMENTIN [Suspect]
     Active Substance: AMOXICILLIN\CLAVULANATE POTASSIUM
     Indication: Infection prophylaxis
     Route: 048
     Dates: start: 20240115, end: 20240121
  5. DAFALGAN CODEINE [Suspect]
     Active Substance: ACETAMINOPHEN\CODEINE PHOSPHATE
     Indication: Pain
     Route: 048
     Dates: start: 20240117, end: 20240121
  6. GOMENOL [Suspect]
     Active Substance: NIAOULI OIL
     Indication: Upper respiratory tract congestion
     Route: 055
     Dates: start: 20240117, end: 20240121

REACTIONS (2)
  - Rash maculo-papular [Recovering/Resolving]
  - Hyperthermia [Recovered/Resolved]

NARRATIVE: CASE EVENT DATE: 20240119
